FAERS Safety Report 7404996-5 (Version None)
Quarter: 2011Q2

REPORT INFORMATION
  Report Type: 
  Country: None (occurrence: None)
  Receive Date: 20110411
  Receipt Date: 20110329
  Transmission Date: 20111010
  Serious: Yes (Death)
  Sender: FDA-Public Use
  Company Number: DK-RANBAXY-2011R1-43572

PATIENT
  Age: 10 Hour

DRUGS (1)
  1. FLUOXETINE [Suspect]
     Indication: PRODUCT USED FOR UNKNOWN INDICATION
     Dosage: UNK
     Route: 064

REACTIONS (6)
  - DRUG EXPOSURE DURING PREGNANCY [None]
  - HAEMORRHAGE [None]
  - DEATH [None]
  - CARDIOPULMONARY FAILURE [None]
  - PULMONARY HYPERTENSION [None]
  - PULMONARY OEDEMA [None]
